FAERS Safety Report 6909141-8 (Version None)
Quarter: 2010Q3

REPORT INFORMATION
  Report Type: 
  Country: None (occurrence: None)
  Receive Date: 20100805
  Receipt Date: 20100728
  Transmission Date: 20110219
  Serious: Yes (Death)
  Sender: FDA-Public Use
  Company Number: US-PFIZER INC-2010078590

PATIENT
  Sex: Female
  Weight: 95.692 kg

DRUGS (5)
  1. FESOTERODINE [Suspect]
     Indication: HYPERTONIC BLADDER
     Dosage: 4 MG, 1X/DAY
     Dates: start: 20100329
  2. LEXAPRO [Concomitant]
     Indication: DEPRESSION
     Dosage: 10 MG, UNK
     Route: 048
     Dates: start: 20100329
  3. ALPRAZOLAM [Concomitant]
     Indication: ANXIETY
     Dosage: 0.5 MG, UNK
     Route: 048
     Dates: start: 20100329
  4. VITAMIN B-12 [Concomitant]
     Indication: ANAEMIA
     Dosage: UNK
     Route: 030
     Dates: start: 20100329
  5. FEOSOL [Concomitant]
     Indication: ANAEMIA
     Dosage: 45 MG, UNK
     Route: 048
     Dates: start: 20100329

REACTIONS (1)
  - DEATH [None]
